FAERS Safety Report 23987416 (Version 2)
Quarter: 2024Q3

REPORT INFORMATION
  Report Type: Spontaneous
  Country: US (occurrence: US)
  Receive Date: 20240618
  Receipt Date: 20240716
  Transmission Date: 20241016
  Serious: No
  Sender: CALLIDITAS THERAPEUTICS
  Company Number: US-Calliditas-2024CAL01062

PATIENT
  Age: 66 Year
  Sex: Male
  Weight: 103.8 kg

DRUGS (2)
  1. TARPEYO [Suspect]
     Active Substance: BUDESONIDE
     Indication: IgA nephropathy
     Route: 048
     Dates: start: 20240424
  2. CARVEDILOL [Concomitant]
     Active Substance: CARVEDILOL

REACTIONS (5)
  - COVID-19 [Unknown]
  - Proteinuria [Not Recovered/Not Resolved]
  - Product dose omission issue [Unknown]
  - Product residue present [Unknown]
  - Gastrointestinal disorder [Unknown]

NARRATIVE: CASE EVENT DATE: 20240501
